FAERS Safety Report 9860147 (Version 1)
Quarter: 2014Q1

REPORT INFORMATION
  Report Type: Report from Study
  Country: CA (occurrence: CA)
  Receive Date: 20140201
  Receipt Date: 20140201
  Transmission Date: 20141002
  Serious: Yes (Hospitalization)
  Sender: FDA-Public Use
  Company Number: CA-ROCHE-1340177

PATIENT
  Sex: Female
  Weight: 86.2 kg

DRUGS (19)
  1. RITUXAN [Suspect]
     Indication: RHEUMATOID ARTHRITIS
     Dosage: FREQUENCY:  DAY 1, DAY 15
     Route: 042
     Dates: start: 20120605, end: 20120619
  2. DIPHENHYDRAMINE HCL [Concomitant]
     Indication: PREMEDICATION
     Dosage: AS PER PIR
     Route: 042
     Dates: start: 20120605, end: 20120619
  3. ACETAMINOPHEN [Concomitant]
     Indication: PREMEDICATION
     Route: 048
     Dates: start: 20120605, end: 20120619
  4. METHYLPREDNISOLONE [Concomitant]
     Indication: PREMEDICATION
     Route: 042
     Dates: start: 20120605, end: 20120619
  5. PREDNISONE [Concomitant]
  6. DITROPAN [Concomitant]
  7. SYNTHROID [Concomitant]
  8. GABAPENTIN [Concomitant]
  9. ZOPICLONE [Concomitant]
  10. BISACODYL [Concomitant]
  11. VITAMIN B12 [Concomitant]
  12. SERTRALINE [Concomitant]
  13. PANTOLOC [Concomitant]
  14. DOCUSATE SODIUM [Concomitant]
  15. TYLENOL/CODEINE [Concomitant]
  16. NYSTATIN [Concomitant]
     Dosage: NYSTATIN CREAM AND NYSTATIN ORAL
     Route: 065
  17. BETAHISTINE [Concomitant]
  18. APO-SALVENT [Concomitant]
  19. CLOTRIMADERM [Concomitant]

REACTIONS (1)
  - Musculoskeletal chest pain [Unknown]
